FAERS Safety Report 26109497 (Version 3)
Quarter: 2025Q4

REPORT INFORMATION
  Report Type: Report from Study
  Country: US (occurrence: US)
  Receive Date: 20251201
  Receipt Date: 20251215
  Transmission Date: 20260119
  Serious: Yes (Other)
  Sender: PFIZER
  Company Number: US-PFIZER INC-PV202500139054

PATIENT
  Age: 75 Year
  Sex: Female

DRUGS (2)
  1. PREMPRO [Suspect]
     Active Substance: ESTROGENS, CONJUGATED\MEDROXYPROGESTERONE ACETATE
     Indication: Osteoporosis postmenopausal
     Dosage: 0.625-2.5MG; TAKES 1 A DAY
  2. CELEBREX [Concomitant]
     Active Substance: CELECOXIB
     Dosage: UNK

REACTIONS (10)
  - Pulmonary thrombosis [Unknown]
  - Therapeutic response unexpected [Unknown]
  - Fall [Unknown]
  - Limb injury [Unknown]
  - Skin discolouration [Unknown]
  - Nerve injury [Unknown]
  - Nerve compression [Recovered/Resolved]
  - Intervertebral disc protrusion [Unknown]
  - Intentional product misuse [Unknown]
  - Urinary incontinence [Unknown]
